FAERS Safety Report 5000738-1 (Version None)
Quarter: 2006Q2

REPORT INFORMATION
  Report Type: 
  Country: None (occurrence: None)
  Receive Date: 20060512
  Receipt Date: 20060508
  Transmission Date: 20061013
  Serious: Yes (Other)
  Sender: FDA-Public Use
  Company Number: PHEH2006US06021

PATIENT
  Age: 45 Year
  Sex: Female

DRUGS (1)
  1. VIVELLE-DOT [Suspect]
     Indication: HORMONE REPLACEMENT THERAPY
     Dosage: 0.025 MG/DAY, 2X WEEK
     Route: 062
     Dates: start: 20060426

REACTIONS (3)
  - HEADACHE [None]
  - HEART RATE INCREASED [None]
  - SYNCOPE [None]
